FAERS Safety Report 14449022 (Version 1)
Quarter: 2018Q1

REPORT INFORMATION
  Report Type: Spontaneous
  Country: SE (occurrence: SE)
  Receive Date: 20180126
  Receipt Date: 20180126
  Transmission Date: 20180509
  Serious: Yes (Other)
  Sender: FDA-Public Use
  Company Number: SE-009507513-1801SWE007309

PATIENT
  Age: 73 Year
  Sex: Male

DRUGS (7)
  1. COZAAR COMP [Suspect]
     Active Substance: HYDROCHLOROTHIAZIDE\LOSARTAN POTASSIUM
     Indication: HYPERTENSION
     Dosage: 1 DF, UNK
     Route: 048
  2. KALCIPOS [Concomitant]
     Active Substance: CALCIUM CARBONATE
  3. PRADAXA [Concomitant]
     Active Substance: DABIGATRAN ETEXILATE MESYLATE
  4. FOLACIN [Concomitant]
     Active Substance: FOLIC ACID
  5. COZAAR COMP 50 MG/12,5 MG FILMDRAGERADE TABLETTER [Suspect]
     Active Substance: HYDROCHLOROTHIAZIDE\LOSARTAN POTASSIUM
     Indication: HYPERTENSION
     Dosage: 1 DF, UNK
     Route: 048
     Dates: start: 2008
  6. COZAAR COMP 50 MG/12,5 MG FILMDRAGERADE TABLETTER [Suspect]
     Active Substance: HYDROCHLOROTHIAZIDE\LOSARTAN POTASSIUM
     Dosage: TWO TABLETS PER DAY
     Route: 048
     Dates: start: 20171223
  7. BEHEPAN [Concomitant]
     Active Substance: HYDROXOCOBALAMIN

REACTIONS (5)
  - Atrial flutter [Recovered/Resolved]
  - Product packaging issue [Unknown]
  - Atrial flutter [Recovered/Resolved]
  - Nasopharyngitis [Unknown]
  - Cough [Unknown]

NARRATIVE: CASE EVENT DATE: 201801
